FAERS Safety Report 6062844-2 (Version None)
Quarter: 2009Q1

REPORT INFORMATION
  Report Type: 
  Country: None (occurrence: None)
  Receive Date: 20090129
  Receipt Date: 20090113
  Transmission Date: 20090719
  Serious: Yes (Hospitalization, Other)
  Sender: FDA-Public Use
  Company Number: 000177

PATIENT
  Age: 14 Day
  Sex: Female
  Weight: 2 kg

DRUGS (2)
  1. ALPROSTADIL [Suspect]
     Indication: DUCTUS ARTERIOSUS PREMATURE CLOSURE
  2. ALPROSTADIL ALFADEX [Suspect]
     Indication: DUCTUS ARTERIOSUS PREMATURE CLOSURE

REACTIONS (6)
  - ANURIA [None]
  - CARDIAC FAILURE CONGESTIVE [None]
  - CONDITION AGGRAVATED [None]
  - ILEUS PARALYTIC [None]
  - METABOLIC ACIDOSIS [None]
  - PERITONEAL DIALYSIS [None]
